FAERS Safety Report 12483636 (Version 1)
Quarter: 2016Q2

REPORT INFORMATION
  Report Type: Spontaneous
  Country: US (occurrence: US)
  Receive Date: 20160621
  Receipt Date: 20160621
  Transmission Date: 20160815
  Serious: Yes (Hospitalization, Other)
  Sender: FDA-Public Use
  Company Number: US-ACCORD-041643

PATIENT
  Age: 18 Year
  Sex: Female

DRUGS (7)
  1. MYCOPHENOLIC ACID. [Suspect]
     Active Substance: MYCOPHENOLIC ACID
     Indication: GLOMERULONEPHRITIS CHRONIC
  2. ERYTHROPOIETIN HUMAN [Concomitant]
  3. PREDNISONE. [Concomitant]
     Active Substance: PREDNISONE
     Indication: GLOMERULONEPHRITIS CHRONIC
  4. METOPROLOL. [Concomitant]
     Active Substance: METOPROLOL
  5. NIFEDIPINE. [Concomitant]
     Active Substance: NIFEDIPINE
  6. FOLATE SODIUM/FOLIC ACID [Concomitant]
  7. LEVETIRACETAM. [Concomitant]
     Active Substance: LEVETIRACETAM

REACTIONS (2)
  - Posterior reversible encephalopathy syndrome [Recovering/Resolving]
  - Off label use [Unknown]
